FAERS Safety Report 16737868 (Version 2)
Quarter: 2019Q3

REPORT INFORMATION
  Report Type: Spontaneous
  Country: US (occurrence: US)
  Receive Date: 20190824
  Receipt Date: 20190828
  Transmission Date: 20191005
  Serious: No
  Sender: FDA-Public Use
  Company Number: US-UNITED THERAPEUTICS-UNT-2019-013722

PATIENT
  Sex: Female
  Weight: 77.55 kg

DRUGS (4)
  1. TYVASO [Suspect]
     Active Substance: TREPROSTINIL
     Dosage: 36 ?G, UNK
  2. TYVASO [Suspect]
     Active Substance: TREPROSTINIL
     Indication: PULMONARY ARTERIAL HYPERTENSION
     Dosage: 54 ?G, UNK
  3. TYVASO [Suspect]
     Active Substance: TREPROSTINIL
     Dosage: 18-54 ?G, QID
     Dates: start: 20190716
  4. TYVASO [Suspect]
     Active Substance: TREPROSTINIL
     Dosage: 6-54 ?G, QID

REACTIONS (7)
  - Neck pain [Unknown]
  - Myalgia [Unknown]
  - Bite [Unknown]
  - Tenderness [Unknown]
  - Muscle spasms [Unknown]
  - Pain [Unknown]
  - Pain in extremity [Unknown]

NARRATIVE: CASE EVENT DATE: 2019
